FAERS Safety Report 10076332 (Version 2)
Quarter: 2014Q2

REPORT INFORMATION
  Report Type: Spontaneous
  Country: JP (occurrence: JP)
  Receive Date: 20140414
  Receipt Date: 20140414
  Transmission Date: 20141212
  Serious: Yes (Other)
  Sender: FDA-Public Use
  Company Number: JP-009507513-1103USA02626

PATIENT
  Age: 73 Year
  Sex: Male

DRUGS (3)
  1. TAPROS [Suspect]
     Indication: NORMAL TENSION GLAUCOMA
     Dosage: 1 DROP LEFT EYE, QD
     Route: 047
     Dates: start: 20100602, end: 20110302
  2. MIKELAN LA [Concomitant]
     Indication: NORMAL TENSION GLAUCOMA
     Dosage: BOTH EYES
     Dates: start: 20080423
  3. LEVOCABASTINE HYDROCHLORIDE [Concomitant]
     Dates: start: 20100310, end: 20100602

REACTIONS (2)
  - Lymphoma [Not Recovered/Not Resolved]
  - Blepharal pigmentation [Recovered/Resolved]
